FAERS Safety Report 13694308 (Version 1)
Quarter: 2017Q2

REPORT INFORMATION
  Report Type: Spontaneous
  Country: US (occurrence: US)
  Receive Date: 20170627
  Receipt Date: 20170627
  Transmission Date: 20170830
  Serious: Yes (Other)
  Sender: FDA-Public Use
  Company Number: US-JUBILANT CADISTA PHARMACEUTICALS-2017JUB00216

PATIENT
  Sex: Male

DRUGS (6)
  1. PROMETHAZINE COUGH SYRUP [Suspect]
     Active Substance: PROMETHAZINE\PROMETHAZINE HYDROCHLORIDE
     Indication: COUGH
  2. LEVAQUIN [Suspect]
     Active Substance: LEVOFLOXACIN
     Indication: COUGH
  3. PREDNISONE. [Suspect]
     Active Substance: PREDNISONE
     Indication: COUGH
  4. LEVAQUIN [Suspect]
     Active Substance: LEVOFLOXACIN
     Indication: RESPIRATORY TRACT CONGESTION
     Dosage: UNK, TWICE
     Dates: start: 201703
  5. PROMETHAZINE COUGH SYRUP [Suspect]
     Active Substance: PROMETHAZINE\PROMETHAZINE HYDROCHLORIDE
     Indication: RESPIRATORY TRACT CONGESTION
     Dosage: UNK
     Dates: start: 201703
  6. PREDNISONE. [Suspect]
     Active Substance: PREDNISONE
     Indication: RESPIRATORY TRACT CONGESTION
     Dosage: UNK
     Dates: start: 201703

REACTIONS (5)
  - Chronic obstructive pulmonary disease [Unknown]
  - Oxygen saturation decreased [Unknown]
  - Exposure to mould [Unknown]
  - Off label use [Unknown]
  - Sinusitis [Unknown]

NARRATIVE: CASE EVENT DATE: 2017
